FAERS Safety Report 7312542-X (Version None)
Quarter: 2011Q1

REPORT INFORMATION
  Report Type: 
  Country: None (occurrence: None)
  Receive Date: 20110224
  Receipt Date: 20110215
  Transmission Date: 20110831
  Serious: Yes (Hospitalization, Other)
  Sender: FDA-Public Use
  Company Number: FR-BAXTER-2011BH000275

PATIENT
  Age: 82 Year
  Sex: Female

DRUGS (4)
  1. EXTRANEAL [Suspect]
     Indication: PERITONEAL DIALYSIS
     Route: 033
     Dates: start: 20100721, end: 20101230
  2. DIANEAL [Suspect]
     Indication: PERITONEAL DIALYSIS
     Route: 033
     Dates: start: 20100721, end: 20101230
  3. DIANEAL [Suspect]
     Route: 033
     Dates: start: 20100721, end: 20101230
  4. EXTRANEAL [Suspect]
     Route: 033
     Dates: start: 20100721, end: 20101230

REACTIONS (3)
  - PERITONITIS [None]
  - PERITONEAL DIALYSIS COMPLICATION [None]
  - PERITONEAL CLOUDY EFFLUENT [None]
